FAERS Safety Report 5486113-4 (Version None)
Quarter: 2007Q4

REPORT INFORMATION
  Report Type: 
  Country: None (occurrence: None)
  Receive Date: 20071015
  Receipt Date: 20071003
  Transmission Date: 20080405
  Serious: Yes (Hospitalization, Other)
  Sender: FDA-Public Use
  Company Number: AR-PFIZER INC-2007073696

PATIENT
  Sex: Male
  Weight: 52 kg

DRUGS (4)
  1. SUTENT [Suspect]
     Indication: RENAL CELL CARCINOMA STAGE UNSPECIFIED
     Route: 048
     Dates: start: 20061201, end: 20070801
  2. SUTENT [Suspect]
     Indication: METASTASES TO LUNG
  3. SUTENT [Suspect]
     Indication: METASTASES TO BONE
  4. CALCIUM CITRATE [Concomitant]
     Route: 048

REACTIONS (3)
  - BLOOD CREATININE INCREASED [None]
  - BLOOD UREA INCREASED [None]
  - SMALL INTESTINAL PERFORATION [None]
